FAERS Safety Report 5333400-6 (Version None)
Quarter: 2007Q2

REPORT INFORMATION
  Report Type: 
  Country: None (occurrence: None)
  Receive Date: 20070522
  Receipt Date: 20070522
  Transmission Date: 20071010
  Serious: Yes (Hospitalization)
  Sender: FDA-Public Use
  Company Number: None

PATIENT
  Age: 56 Year
  Sex: Male

DRUGS (3)
  1. MONTELUKAST SODIUM [Suspect]
     Indication: ASTHMA
     Dosage: 10MG EVERY DAY PO
     Route: 048
     Dates: start: 20060913, end: 20061129
  2. MONTELUKAST SODIUM [Suspect]
     Indication: HYPERSENSITIVITY
     Dosage: 10MG EVERY DAY PO
     Route: 048
     Dates: start: 20060913, end: 20061129
  3. MONTELUKAST SODIUM [Suspect]
     Indication: SCHIZOPHRENIA, PARANOID TYPE
     Dosage: 10MG EVERY DAY PO
     Route: 048
     Dates: start: 20060913, end: 20061129

REACTIONS (1)
  - ALLERGIC GRANULOMATOUS ANGIITIS [None]
